FAERS Safety Report 7123807-9 (Version None)
Quarter: 2010Q4

REPORT INFORMATION
  Report Type: 
  Country: None (occurrence: None)
  Receive Date: 20101125
  Receipt Date: 20101116
  Transmission Date: 20110411
  Serious: Yes (Death)
  Sender: FDA-Public Use
  Company Number: PHHY2010JP79564

PATIENT
  Sex: Female
  Weight: 36 kg

DRUGS (2)
  1. DIOVAN [Suspect]
     Dosage: 20MG ONCE DAILY
     Route: 048
     Dates: start: 20080225
  2. TENORMIN [Concomitant]
     Indication: HYPERTENSION
     Dosage: 25MG
     Route: 048
     Dates: start: 20031205

REACTIONS (2)
  - OESOPHAGEAL CARCINOMA [None]
  - REFUSAL OF TREATMENT BY PATIENT [None]
